FAERS Safety Report 21445013 (Version 1)
Quarter: 2022Q4

REPORT INFORMATION
  Report Type: Spontaneous
  Country: CH (occurrence: CH)
  Receive Date: 20221012
  Receipt Date: 20221012
  Transmission Date: 20230112
  Serious: Yes (Other)
  Sender: FDA-Public Use
  Company Number: CH-MLMSERVICE-20220928-3821519-2

PATIENT
  Age: 61 Year
  Sex: Female

DRUGS (7)
  1. ETOPOSIDE [Suspect]
     Active Substance: ETOPOSIDE
     Indication: Small cell lung cancer
     Dosage: 16-STEP DESENSITIZATION PROTOCOL
     Dates: start: 2019
  2. METFORMIN [Concomitant]
     Active Substance: METFORMIN HYDROCHLORIDE
     Dates: start: 2019
  3. PEMBROLIZUMAB [Concomitant]
     Active Substance: PEMBROLIZUMAB
     Indication: Metastases to central nervous system
     Dates: start: 2019
  4. IRINOTECAN [Concomitant]
     Active Substance: IRINOTECAN
     Indication: Small cell lung cancer
     Dates: start: 2019
  5. PEMBROLIZUMAB [Concomitant]
     Active Substance: PEMBROLIZUMAB
     Indication: Small cell lung cancer
     Dates: start: 2019
  6. ETOPOSIDE [Suspect]
     Active Substance: ETOPOSIDE
     Indication: Metastases to central nervous system
     Dosage: 16-STEP DESENSITIZATION PROTOCOL
     Dates: start: 2019
  7. IRINOTECAN [Concomitant]
     Active Substance: IRINOTECAN
     Indication: Metastases to central nervous system
     Dates: start: 2019

REACTIONS (1)
  - Haematotoxicity [Unknown]

NARRATIVE: CASE EVENT DATE: 20190101
